FAERS Safety Report 19366621 (Version 1)
Quarter: 2021Q2

REPORT INFORMATION
  Report Type: Spontaneous
  Country: GB (occurrence: GB)
  Receive Date: 20210603
  Receipt Date: 20210603
  Transmission Date: 20210717
  Serious: Yes (Other)
  Sender: FDA-Public Use
  Company Number: GB-ACCORD-226761

PATIENT
  Age: 74 Year
  Sex: Female
  Weight: 84.45 kg

DRUGS (47)
  1. ETOPOSIDE. [Suspect]
     Active Substance: ETOPOSIDE
     Indication: SMALL CELL LUNG CANCER EXTENSIVE STAGE
     Dates: start: 20201124
  2. PARACETAMOL [Concomitant]
     Active Substance: ACETAMINOPHEN
     Indication: PAIN
  3. POTASSIUM CHLORIDE. [Concomitant]
     Active Substance: POTASSIUM CHLORIDE
     Dosage: EVERY 0.33 DAY
     Dates: end: 20210104
  4. ADCAL [Concomitant]
     Dosage: UNK, EVERY 0.5 DAY
     Dates: start: 20201124
  5. AMITRIPTYLINE [Concomitant]
     Active Substance: AMITRIPTYLINE
  6. AQUEOUS CREAM [Concomitant]
     Dosage: UNK, EVERY 0.5 DAY
  7. MEROPENEM. [Concomitant]
     Active Substance: MEROPENEM
     Dosage: EVERY 0.33 DAY
     Dates: end: 20210103
  8. NYSTATIN. [Concomitant]
     Active Substance: NYSTATIN
     Dosage: EVERY 4 DAY
     Dates: end: 20210107
  9. FILGRASTIM [Concomitant]
     Active Substance: FILGRASTIM
     Dosage: UNK, DAILY
     Dates: start: 20201128, end: 20201205
  10. DALTEPARIN [Concomitant]
     Active Substance: DALTEPARIN
     Dosage: DAILY
     Dates: end: 20210125
  11. ONDANSETRON [Concomitant]
     Active Substance: ONDANSETRON
     Dosage: UNK, EVERY 0.33 DAY
  12. PHOSPHORIC ACID [Concomitant]
     Active Substance: PHOSPHORIC ACID
     Dosage: DAILY
     Dates: end: 20201226
  13. SODIUM CHLORIDE. [Concomitant]
     Active Substance: SODIUM CHLORIDE
     Dates: start: 20201124, end: 20201124
  14. CYCLIZINE [Concomitant]
     Active Substance: CYCLIZINE
     Dosage: UNK, EVERY 0.33 DAY
  15. ATEZOLIZUMAB. [Suspect]
     Active Substance: ATEZOLIZUMAB
     Indication: SMALL CELL LUNG CANCER EXTENSIVE STAGE
     Dosage: 1200 MG, Q3WEEKS
  16. DEXAMETHASONE. [Suspect]
     Active Substance: DEXAMETHASONE
     Indication: PRODUCT USED FOR UNKNOWN INDICATION
  17. DEXAMETHASONE. [Suspect]
     Active Substance: DEXAMETHASONE
     Indication: PRODUCT USED FOR UNKNOWN INDICATION
     Dosage: UNK, DAILY
  18. CHLORPHENAMINE/CHLORPHENAMINE MALEATE/CHLORPHENAMINE RESINATE/CHLORPHENAMINE TANNATE [Concomitant]
     Active Substance: CHLORPHENIRAMINE
     Dosage: DAILY
     Dates: end: 20201215
  19. ATEZOLIZUMAB. [Suspect]
     Active Substance: ATEZOLIZUMAB
     Indication: SMALL CELL LUNG CANCER EXTENSIVE STAGE
     Dosage: 1200 MG, Q3WEEKS
     Dates: start: 20201124
  20. PHYTOMENADIONE [Concomitant]
     Active Substance: PHYTONADIONE
     Dosage: EVERY 0.5 DAY
     Dates: end: 20201226
  21. SIMVASTATIN. [Concomitant]
     Active Substance: SIMVASTATIN
     Dosage: DAILY
  22. CHLORPHENAMINE/CHLORPHENAMINE MALEATE/CHLORPHENAMINE RESINATE/CHLORPHENAMINE TANNATE [Concomitant]
     Active Substance: CHLORPHENIRAMINE
     Dosage: DAILY
     Dates: start: 20201124, end: 20201124
  23. CLOBETASOL [Concomitant]
     Active Substance: CLOBETASOL
     Dosage: DAILY
     Dates: end: 20210108
  24. AMOXICILLIN SODIUM/CLAVULANATE POTASSIUM [Concomitant]
     Active Substance: AMOXICILLIN\CLAVULANATE POTASSIUM
     Dosage: UNK, EVERY 0.33 DAY
     Dates: end: 20210107
  25. DENOSUMAB [Concomitant]
     Active Substance: DENOSUMAB
     Dosage: MONTHLY
     Dates: start: 20201124
  26. DIHYDROCODEINE [Concomitant]
     Active Substance: DIHYDROCODEINE
     Indication: PAIN
  27. ONDANSETRON [Concomitant]
     Active Substance: ONDANSETRON
     Dosage: UNK, DAILY
     Dates: start: 20201124, end: 20201124
  28. VANCOMYCIN [Concomitant]
     Active Substance: VANCOMYCIN
     Dosage: EVERY 4 DAY
     Dates: end: 20210120
  29. LOPERAMIDE [Concomitant]
     Active Substance: LOPERAMIDE
     Dates: start: 20201103
  30. ATEZOLIZUMAB. [Suspect]
     Active Substance: ATEZOLIZUMAB
     Indication: SMALL CELL LUNG CANCER EXTENSIVE STAGE
     Dosage: 1200 MG, Q3WEEKS
     Dates: start: 20201103
  31. DEXAMETHASONE. [Suspect]
     Active Substance: DEXAMETHASONE
     Indication: PRODUCT USED FOR UNKNOWN INDICATION
  32. PHOSPHATE SANDOZ [Concomitant]
     Active Substance: SODIUM PHOSPHATE, MONOBASIC, ANHYDROUS
     Dosage: EVERY 0.33 DAYS
     Dates: end: 20210108
  33. CALCIUM GLUCONATE. [Concomitant]
     Active Substance: CALCIUM GLUCONATE
     Dosage: DAILY
     Dates: end: 20201226
  34. METHYLPREDNISOLONE. [Concomitant]
     Active Substance: METHYLPREDNISOLONE
     Dosage: DAILY
     Dates: end: 20210120
  35. DEXAMETHASONE. [Suspect]
     Active Substance: DEXAMETHASONE
     Indication: PRODUCT USED FOR UNKNOWN INDICATION
     Dosage: UNK, DAILY
     Dates: start: 20201124, end: 20201124
  36. PREDNISOLONE. [Suspect]
     Active Substance: PREDNISOLONE
     Indication: PRODUCT USED FOR UNKNOWN INDICATION
     Dosage: UNK, DAILY
     Dates: end: 20210121
  37. OXYGEN. [Concomitant]
     Active Substance: OXYGEN
     Dosage: DAILY
     Dates: start: 20201124, end: 20201124
  38. TRIMOVATE [Concomitant]
     Active Substance: CLOBETASONE BUTYRATE\NYSTATIN\OXYTETRACYCLINE CALCIUM
     Dosage: EVERY 0.5 DAY
     Dates: end: 20210109
  39. ACICLOVIR [Concomitant]
     Active Substance: ACYCLOVIR
     Dates: end: 20210126
  40. CALCIUM CARBONATE. [Concomitant]
     Active Substance: CALCIUM CARBONATE
     Dosage: DAILY
     Dates: end: 20210108
  41. FILGRASTIM [Concomitant]
     Active Substance: FILGRASTIM
     Dosage: UNK, DAILY
     Dates: end: 20201226
  42. ONDANSETRON [Concomitant]
     Active Substance: ONDANSETRON
     Dosage: DAILY
     Dates: end: 20201215
  43. CARBOPLATIN. [Suspect]
     Active Substance: CARBOPLATIN
     Indication: SMALL CELL LUNG CANCER EXTENSIVE STAGE
     Dates: start: 20201124
  44. DOMPERIDONE [Concomitant]
     Active Substance: DOMPERIDONE
     Dates: start: 20201103
  45. HYDROCORTISONE. [Concomitant]
     Active Substance: HYDROCORTISONE
     Dosage: 100 MG, DAILY
     Dates: start: 20201124, end: 20201124
  46. MAGNESIUM SULFATE. [Concomitant]
     Active Substance: MAGNESIUM SULFATE
     Dosage: DAILY
     Dates: end: 20201226
  47. DEXAMETHASONE. [Suspect]
     Active Substance: DEXAMETHASONE
     Indication: PRODUCT USED FOR UNKNOWN INDICATION
     Dosage: UNK, DAILY
     Dates: start: 20201125, end: 20201127

REACTIONS (1)
  - Pancreatitis chronic [Not Recovered/Not Resolved]

NARRATIVE: CASE EVENT DATE: 202012
